FAERS Safety Report 17696823 (Version 6)
Quarter: 2022Q1

REPORT INFORMATION
  Report Type: Spontaneous
  Country: US (occurrence: US)
  Receive Date: 20200423
  Receipt Date: 20220120
  Transmission Date: 20220423
  Serious: No
  Sender: FDA-Public Use
  Company Number: US-BIOGEN-2019BI00802631

PATIENT
  Sex: Male

DRUGS (1)
  1. PLEGRIDY [Suspect]
     Active Substance: PEGINTERFERON BETA-1A
     Indication: Multiple sclerosis
     Dosage: FREQUENCY: QOW: EVERY OTHER WEEK
     Route: 058

REACTIONS (3)
  - Insomnia [Unknown]
  - Influenza like illness [Unknown]
  - Injection site erythema [Unknown]
